FAERS Safety Report 15715691 (Version 2)
Quarter: 2019Q3

REPORT INFORMATION
  Report Type: Report from Study
  Country: US (occurrence: US)
  Receive Date: 20181212
  Receipt Date: 20190701
  Transmission Date: 20191004
  Serious: Yes (Hospitalization, Other)
  Sender: FDA-Public Use
  Company Number: US-MYLANLABS-2018M1090707

PATIENT
  Age: 48 Year
  Sex: Female
  Weight: 90.71 kg

DRUGS (1)
  1. GLATIRAMER ACETATE INJECTION [Suspect]
     Active Substance: GLATIRAMER ACETATE
     Indication: RELAPSING-REMITTING MULTIPLE SCLEROSIS
     Dosage: 40 MILLIGRAM, 3XW
     Route: 058
     Dates: start: 2018

REACTIONS (4)
  - Injection site pain [Unknown]
  - Hospitalisation [Unknown]
  - Injection site bruising [Unknown]
  - Insomnia [Unknown]

NARRATIVE: CASE EVENT DATE: 201811
